APPROVED DRUG PRODUCT: TRAZODONE HYDROCHLORIDE
Active Ingredient: TRAZODONE HYDROCHLORIDE
Strength: 50MG
Dosage Form/Route: TABLET;ORAL
Application: A070857 | Product #001
Applicant: WATSON LABORATORIES INC
Approved: Oct 10, 1986 | RLD: No | RS: No | Type: DISCN